FAERS Safety Report 10875033 (Version 1)
Quarter: 2015Q1

REPORT INFORMATION
  Report Type: Spontaneous
  Country: US (occurrence: US)
  Receive Date: 20150227
  Receipt Date: 20150227
  Transmission Date: 20150721
  Serious: Yes (Other)
  Sender: FDA-Public Use
  Company Number: US-ASTRAZENECA-2015SE17050

PATIENT
  Age: 62 Year
  Sex: Female
  Weight: 73.9 kg

DRUGS (6)
  1. FULVESTRANT [Suspect]
     Active Substance: FULVESTRANT
     Indication: BREAST CANCER METASTATIC
     Route: 030
     Dates: start: 201410
  2. ZOLMEDA [Concomitant]
     Indication: BONE DISORDER
     Dosage: UNKNOWN DATE, MONTHLY
     Route: 042
     Dates: start: 2013
  3. FULVESTRANT [Suspect]
     Active Substance: FULVESTRANT
     Indication: BREAST CANCER METASTATIC
     Route: 030
     Dates: start: 201501
  4. FULVESTRANT [Suspect]
     Active Substance: FULVESTRANT
     Indication: BREAST CANCER METASTATIC
     Dosage: TWO SHOTS ( ONE IN EACH BUTTOCK) A MONTH
     Route: 030
     Dates: start: 201411, end: 201501
  5. LETROZOLE. [Concomitant]
     Active Substance: LETROZOLE
     Indication: BREAST CANCER
     Route: 048
     Dates: start: 2013
  6. METFORMIN [Concomitant]
     Active Substance: METFORMIN HYDROCHLORIDE
     Indication: DIABETES MELLITUS
     Route: 048
     Dates: start: 2013

REACTIONS (6)
  - Hormone level abnormal [Unknown]
  - Crying [Unknown]
  - Somnolence [Unknown]
  - Malignant neoplasm progression [Unknown]
  - Crying [Unknown]
  - Injection site pain [Unknown]

NARRATIVE: CASE EVENT DATE: 201410
